FAERS Safety Report 18491122 (Version 1)
Quarter: 2020Q4

REPORT INFORMATION
  Report Type: Spontaneous
  Country: US (occurrence: US)
  Receive Date: 20201111
  Receipt Date: 20201111
  Transmission Date: 20210114
  Serious: No
  Sender: FDA-Public Use
  Company Number: US-PERRIGO-20US004589

PATIENT
  Age: 68 Year
  Sex: Female
  Weight: 83.9 kg

DRUGS (1)
  1. FAMOTIDINE. [Suspect]
     Active Substance: FAMOTIDINE
     Indication: DYSPEPSIA
     Dosage: 20 MG TO 40 MG, PRN
     Route: 048
     Dates: start: 202002, end: 202003

REACTIONS (3)
  - Drug ineffective [Unknown]
  - Foreign body in throat [Recovered/Resolved]
  - Incorrect dose administered [Recovered/Resolved]

NARRATIVE: CASE EVENT DATE: 202002
